FAERS Safety Report 18445256 (Version 1)
Quarter: 2020Q4

REPORT INFORMATION
  Report Type: Spontaneous
  Country: TZ (occurrence: TZ)
  Receive Date: 20201030
  Receipt Date: 20201030
  Transmission Date: 20210114
  Serious: Yes (Death, Hospitalization)
  Sender: FDA-Public Use
  Company Number: NVSC2020TZ289956

PATIENT
  Sex: Male

DRUGS (1)
  1. GLIVEC [Suspect]
     Active Substance: IMATINIB MESYLATE
     Indication: CHRONIC MYELOID LEUKAEMIA
     Dosage: 600 MG (6X100MG)
     Route: 065

REACTIONS (15)
  - White blood cell count abnormal [Unknown]
  - Abdominal discomfort [Unknown]
  - Blood urea abnormal [Unknown]
  - Haemoglobin decreased [Unknown]
  - Platelet count abnormal [Unknown]
  - Pain in extremity [Unknown]
  - Blood magnesium abnormal [Unknown]
  - Splenomegaly [Unknown]
  - Pyrexia [Unknown]
  - Death [Fatal]
  - Blood lactic acid abnormal [Unknown]
  - Blast crisis in myelogenous leukaemia [Unknown]
  - Hyperhidrosis [Unknown]
  - Staphylococcus test positive [Unknown]
  - Abdominal distension [Unknown]
